FAERS Safety Report 8009147-4 (Version None)
Quarter: 2011Q4

REPORT INFORMATION
  Report Type: 
  Country: None (occurrence: None)
  Receive Date: 20111227
  Receipt Date: 20111219
  Transmission Date: 20120403
  Serious: Yes (Death, Other)
  Sender: FDA-Public Use
  Company Number: PHEH2011US07492

PATIENT
  Sex: Male

DRUGS (1)
  1. GLEEVEC [Suspect]
     Indication: CHRONIC MYELOID LEUKAEMIA
     Dosage: 400 MG, DAILY
     Route: 048
     Dates: start: 20110916

REACTIONS (5)
  - NAUSEA [None]
  - GASTROINTESTINAL PERFORATION [None]
  - ABDOMINAL PAIN [None]
  - CARDIAC ARREST [None]
  - INSOMNIA [None]
